FAERS Safety Report 7220227-3 (Version None)
Quarter: 2011Q1

REPORT INFORMATION
  Report Type: 
  Country: None (occurrence: None)
  Receive Date: 20110111
  Receipt Date: 20101229
  Transmission Date: 20110831
  Serious: Yes (Disabling)
  Sender: FDA-Public Use
  Company Number: US-MERCK-1012USA04204

PATIENT
  Age: 57 Year
  Sex: Female

DRUGS (7)
  1. ATENOLOL [Concomitant]
     Route: 065
  2. PRAVASTATIN SODIUM [Concomitant]
     Route: 065
  3. CALCIUM CARBONATE [Concomitant]
     Route: 065
  4. MAXZIDE [Concomitant]
     Route: 065
  5. ATARAX (ALPRAZOLAM) [Concomitant]
     Route: 065
  6. ZOLINZA [Suspect]
     Indication: MYCOSIS FUNGOIDES
     Route: 048
     Dates: start: 20100401
  7. ASPIRIN [Concomitant]
     Route: 065

REACTIONS (4)
  - BLINDNESS UNILATERAL [None]
  - MASS [None]
  - UNDERDOSE [None]
  - VITREOUS HAEMORRHAGE [None]
